FAERS Safety Report 8094124-8 (Version None)
Quarter: 2012Q1

REPORT INFORMATION
  Report Type: 
  Country: None (occurrence: None)
  Receive Date: 20120130
  Receipt Date: 20120130
  Transmission Date: 20120608
  Serious: No
  Sender: FDA-Public Use
  Company Number: None

PATIENT
  Age: 45 Year
  Sex: Female
  Weight: 63.502 kg

DRUGS (1)
  1. AMPHETAMINES [Suspect]
     Indication: ATTENTION DEFICIT/HYPERACTIVITY DISORDER
     Dosage: 20.0 MG
     Route: 048
     Dates: start: 20120114, end: 20120127

REACTIONS (5)
  - GASTRIC DISORDER [None]
  - PRODUCT SUBSTITUTION ISSUE [None]
  - HEADACHE [None]
  - DISTURBANCE IN ATTENTION [None]
  - IRRITABILITY [None]
